FAERS Safety Report 15660491 (Version 4)
Quarter: 2019Q2

REPORT INFORMATION
  Report Type: Spontaneous
  Country: JP (occurrence: JP)
  Receive Date: 20181127
  Receipt Date: 20190417
  Transmission Date: 20190711
  Serious: Yes (Hospitalization, Other)
  Sender: FDA-Public Use
  Company Number: JP-GLAXOSMITHKLINE-JP2018JPN211175

PATIENT
  Age: 67 Year
  Sex: Female
  Weight: 52 kg

DRUGS (14)
  1. PRAVASTATIN SODIUM. [Concomitant]
     Active Substance: PRAVASTATIN SODIUM
     Indication: HYPERLIPIDAEMIA
     Dosage: 5 MG, QD
     Route: 048
     Dates: start: 20170816
  2. SENNOSIDES. [Suspect]
     Active Substance: SENNOSIDES
     Dosage: UNK
     Route: 048
     Dates: end: 2018
  3. LANSOPRAZOLE-OD [Concomitant]
     Active Substance: LANSOPRAZOLE
     Indication: GASTRIC ULCER
     Dosage: 15 MG, BID
     Route: 048
     Dates: start: 20181010
  4. JZOLOFT [Concomitant]
     Active Substance: SERTRALINE HYDROCHLORIDE
     Indication: PANIC DISORDER
     Dosage: 25 MG, UNK
     Route: 048
     Dates: start: 20181010, end: 20181016
  5. THYRADIN S [Concomitant]
     Active Substance: LEVOTHYROXINE SODIUM
     Dosage: 50 ?G, QD
     Dates: start: 1993, end: 20181018
  6. CASAL [Concomitant]
     Active Substance: VIDARABINE
     Dosage: UNK, TID
     Route: 050
     Dates: start: 20181016
  7. ZETIA [Concomitant]
     Active Substance: EZETIMIBE
     Indication: HYPERLIPIDAEMIA
     Dosage: 10 MG, QD
     Route: 048
     Dates: start: 20150415
  8. MAGMITT [Suspect]
     Active Substance: MAGNESIUM OXIDE
     Indication: CONSTIPATION
     Dosage: 990 MG, 1D
     Route: 048
     Dates: start: 20180822, end: 20181016
  9. MAGMITT [Suspect]
     Active Substance: MAGNESIUM OXIDE
     Dosage: 990 MG, TID
     Dates: start: 20181026
  10. THYRADIN S [Concomitant]
     Active Substance: LEVOTHYROXINE SODIUM
     Dosage: 50 ?G, QD
     Dates: start: 20181021
  11. VALTREX [Suspect]
     Active Substance: VALACYCLOVIR HYDROCHLORIDE
     Indication: HERPES ZOSTER
     Dosage: 3000 MG, 1D
     Route: 048
     Dates: start: 20181010, end: 20181014
  12. MEILAX [Concomitant]
     Active Substance: ETHYL LOFLAZEPATE
     Indication: PANIC DISORDER
     Dosage: 1 MG, UNK
     Route: 048
     Dates: start: 20181010, end: 20181016
  13. SENNOSIDES. [Suspect]
     Active Substance: SENNOSIDES
     Indication: CONSTIPATION
     Dosage: 24 MG, 1D
     Route: 048
     Dates: start: 20180822, end: 20181016
  14. NEW LECICARBON [Concomitant]
     Active Substance: SODIUM BICARBONATE\SODIUM PHOSPHATE, MONOBASIC
     Dosage: UNK, PRN
     Dates: start: 20181019

REACTIONS (6)
  - Nephropathy toxic [Recovered/Resolved]
  - Abdominal distension [Recovered/Resolved]
  - Diarrhoea [Recovered/Resolved]
  - Constipation [Recovered/Resolved]
  - Renal impairment [Recovered/Resolved]
  - Vomiting [Recovered/Resolved]

NARRATIVE: CASE EVENT DATE: 20181014
